FAERS Safety Report 4483850-5 (Version None)
Quarter: 2004Q4

REPORT INFORMATION
  Report Type: 
  Country: None (occurrence: None)
  Receive Date: 20041021
  Receipt Date: 20041008
  Transmission Date: 20050328
  Serious: Yes (Life-Threatening, Hospitalization, Disabling, Other)
  Sender: FDA-Public Use
  Company Number: A03200403396

PATIENT
  Age: 65 Year
  Sex: Female
  Weight: 71 kg

DRUGS (2)
  1. ELOXATIN [Suspect]
     Indication: ANAL CANCER RECURRENT
     Dosage: 85 MG/M2, OTHER- INTRAVENOUS NOS
     Route: 042
     Dates: start: 20040611, end: 20040611
  2. XELODA [Suspect]
     Indication: ANAL CANCER RECURRENT
     Dosage: 1500 MG BID - ORAL
     Route: 048
     Dates: start: 20040611, end: 20040617

REACTIONS (3)
  - DIALYSIS [None]
  - RENAL FAILURE ACUTE [None]
  - RENAL FAILURE CHRONIC [None]
